FAERS Safety Report 9336745 (Version 1)
Quarter: 2013Q2

REPORT INFORMATION
  Report Type: Spontaneous
  Country: BR (occurrence: BR)
  Receive Date: 20130607
  Receipt Date: 20130607
  Transmission Date: 20140414
  Serious: Yes (Other)
  Sender: FDA-Public Use
  Company Number: PHHY2013BR057530

PATIENT
  Sex: Male
  Weight: 92 kg

DRUGS (10)
  1. DIOVAN AMLO FIX [Suspect]
     Indication: HYPERTENSION
     Dosage: 1 DF (320/5MG), DAILY
     Route: 048
  2. DIOVAN AMLO FIX [Suspect]
     Indication: CHEST PAIN
  3. DIOVAN AMLO FIX [Suspect]
     Indication: FATIGUE
  4. DIOVAN AMLO FIX [Suspect]
     Indication: OFF LABEL USE
  5. DIUPRESS [Concomitant]
     Indication: HYPERTENSION
     Dosage: 1 DF (25/5MG), DAILY
     Route: 048
  6. ATENOLOL [Concomitant]
     Indication: HYPERTENSION
     Dosage: 1 DF (25MG), DAILY
     Route: 048
  7. ACETYLSALICYLIC ACID [Concomitant]
     Indication: ANGIOPATHY
     Dosage: 1 DF (100MG), DAILY
     Route: 048
  8. VYTORIN [Concomitant]
     Indication: CARDIAC DISORDER
     Dosage: 1 DF (10/20MG), DAILY
     Route: 048
  9. VYTORIN [Concomitant]
     Indication: ANGIOPATHY
  10. CLINFAR [Concomitant]
     Dosage: 1 DF (20MG), DAILY
     Route: 048

REACTIONS (3)
  - Prostatomegaly [Unknown]
  - Dysuria [Recovering/Resolving]
  - Bladder disorder [Recovering/Resolving]
